FAERS Safety Report 18578924 (Version 1)
Quarter: 2020Q4

REPORT INFORMATION
  Report Type: Spontaneous
  Country: US (occurrence: US)
  Receive Date: 20201203
  Receipt Date: 20201203
  Transmission Date: 20210114
  Serious: No
  Sender: FDA-Public Use
  Company Number: None

PATIENT
  Age: 3 Year
  Sex: Female
  Weight: 13.5 kg

DRUGS (1)
  1. MIRALAX [Suspect]
     Active Substance: POLYETHYLENE GLYCOL 3350
     Indication: CONSTIPATION
     Dosage: ?          QUANTITY:1 CAPFUL;?
     Route: 048
     Dates: start: 20191201, end: 20201001

REACTIONS (5)
  - Negative thoughts [None]
  - Abdominal pain upper [None]
  - Abnormal behaviour [None]
  - Anger [None]
  - Irritability [None]

NARRATIVE: CASE EVENT DATE: 20191201
